FAERS Safety Report 7770963-5 (Version None)
Quarter: 2011Q3

REPORT INFORMATION
  Report Type: 
  Country: None (occurrence: None)
  Receive Date: 20110922
  Receipt Date: 20101130
  Transmission Date: 20111222
  Serious: Yes (Other)
  Sender: FDA-Public Use
  Company Number: US-ASTRAZENECA-2008UW27335

PATIENT
  Age: 18092 Day
  Sex: Female

DRUGS (3)
  1. SEROQUEL [Suspect]
     Route: 048
  2. SEROQUEL [Suspect]
     Route: 048
  3. SEROQUEL [Suspect]
     Route: 048
     Dates: start: 20010101

REACTIONS (9)
  - CONVULSION [None]
  - MUSCLE SPASMS [None]
  - PAIN [None]
  - INSOMNIA [None]
  - DENTAL OPERATION [None]
  - ANXIETY [None]
  - BRAIN HYPOXIA [None]
  - NIGHTMARE [None]
  - DRUG DOSE OMISSION [None]
